FAERS Safety Report 11282072 (Version 2)
Quarter: 2015Q3

REPORT INFORMATION
  Report Type: Report from Study
  Country: US (occurrence: US)
  Receive Date: 20150719
  Receipt Date: 20150928
  Transmission Date: 20151125
  Serious: No
  Sender: FDA-Public Use
  Company Number: PHEH2015US012588

PATIENT
  Age: 37 Year
  Sex: Female

DRUGS (4)
  1. EXTAVIA [Suspect]
     Active Substance: INTERFERON BETA-1B
     Dosage: 0.187 MG (0.75 ML), QOD 5-6 WEEKS
     Route: 058
  2. EXTAVIA [Suspect]
     Active Substance: INTERFERON BETA-1B
     Dosage: 0.25 MG (1 ML), QOD 7 AND ABOVE WEEKS
     Route: 058
  3. EXTAVIA [Suspect]
     Active Substance: INTERFERON BETA-1B
     Indication: MULTIPLE SCLEROSIS
     Dosage: 0.062 MG (0.25 ML), QOD 1-2 WEEKS
     Route: 058
     Dates: start: 20130702
  4. EXTAVIA [Suspect]
     Active Substance: INTERFERON BETA-1B
     Dosage: 0.125 MG (0.5 ML), QOD 3-4 WEEKS
     Route: 058

REACTIONS (8)
  - Paraesthesia [Not Recovered/Not Resolved]
  - Injection site pain [Unknown]
  - Injection site reaction [Not Recovered/Not Resolved]
  - Device issue [Not Recovered/Not Resolved]
  - Muscle fatigue [Not Recovered/Not Resolved]
  - Injection site discolouration [Unknown]
  - Injection site mass [Unknown]
  - Injection site bruising [Unknown]

NARRATIVE: CASE EVENT DATE: 20150109
